FAERS Safety Report 16460114 (Version 1)
Quarter: 2019Q2

REPORT INFORMATION
  Report Type: Report from Study
  Country: None (occurrence: AU)
  Receive Date: 20190620
  Receipt Date: 20190620
  Transmission Date: 20190711
  Serious: Yes (Other)
  Sender: FDA-Public Use
  Company Number: AU-BAUSCH-BL-2019-017389

PATIENT
  Age: 5 Year
  Sex: Male

DRUGS (2)
  1. HYDROCORTISONE. [Suspect]
     Active Substance: HYDROCORTISONE
     Indication: DERMATITIS ATOPIC
     Dosage: APPROXIMATELY 2 TIMES A WEEK IN THE 18 MONTHS PRIOR TO TCS CESSATION, USED ON FACE
     Route: 061
  2. METHYLPREDNISOLONE. [Suspect]
     Active Substance: METHYLPREDNISOLONE
     Indication: DERMATITIS ATOPIC
     Dosage: APPROXIMATELY 4 TIMES PER WEEK IN 18 MONTHS PRIOR TO TCS WITHDRAWAL
     Route: 061

REACTIONS (1)
  - Steroid withdrawal syndrome [Unknown]
